FAERS Safety Report 19247069 (Version 1)
Quarter: 2021Q2

REPORT INFORMATION
  Report Type: Spontaneous
  Country: FR (occurrence: FR)
  Receive Date: 20210512
  Receipt Date: 20210512
  Transmission Date: 20210717
  Serious: Yes (Hospitalization)
  Sender: FDA-Public Use
  Company Number: FR-ACCORD-224936

PATIENT
  Age: 91 Year
  Sex: Male

DRUGS (8)
  1. LERCAN [Concomitant]
     Active Substance: LERCANIDIPINE
     Dosage: DAILY
     Route: 048
  2. PANTOPRAZOLE [Concomitant]
     Active Substance: PANTOPRAZOLE
     Dosage: STRENGTH?40 MG, DAILY
     Route: 048
  3. PARACETAMOL [Concomitant]
     Active Substance: ACETAMINOPHEN
  4. LYRICA [Concomitant]
     Active Substance: PREGABALIN
     Dosage: STRENGTH?50 MG, DAILY
     Route: 048
  5. FINASTERIDE ACCORD [Suspect]
     Active Substance: FINASTERIDE
     Indication: PRODUCT USED FOR UNKNOWN INDICATION
     Dosage: STRENGTH?5 MG, PER DAY, ABOUT 10 OR 12 YEARS
     Route: 048
     Dates: end: 202103
  6. KARDEGIC [Concomitant]
     Active Substance: ASPIRIN DL-LYSINE
     Dosage: AT THE POSOLOGY OF 1 DOSAGE FORM DAILY
     Route: 048
  7. FENOFIBRATE. [Concomitant]
     Active Substance: FENOFIBRATE
     Dosage: STRENGTH?160 MG
     Route: 048
  8. TANGANIL [Concomitant]
     Active Substance: ACETYLLEUCINE, L-
     Indication: VERTIGO
     Dosage: PER DAY
     Route: 048

REACTIONS (2)
  - Vertigo [Recovered/Resolved]
  - Fall [Unknown]

NARRATIVE: CASE EVENT DATE: 20201214
